FAERS Safety Report 7926288 (Version 4)
Quarter: 2017Q2

REPORT INFORMATION
  Report Type: Spontaneous
  Country: US (occurrence: US)
  Receive Date: 20110502
  Receipt Date: 20170524
  Transmission Date: 20170830
  Serious: No
  Sender: FDA-Public Use
  Company Number: US-ASTRAZENECA-2010SE60892

PATIENT
  Age: 53 Year
  Sex: Male

DRUGS (6)
  1. NEXIUM [Suspect]
     Active Substance: ESOMEPRAZOLE MAGNESIUM
     Route: 048
  2. NEXIUM [Suspect]
     Active Substance: ESOMEPRAZOLE MAGNESIUM
     Route: 048
  3. NEXIUM [Suspect]
     Active Substance: ESOMEPRAZOLE MAGNESIUM
     Route: 048
  4. NEXIUM [Suspect]
     Active Substance: ESOMEPRAZOLE MAGNESIUM
     Route: 048
     Dates: start: 20170421
  5. NEXIUM [Suspect]
     Active Substance: ESOMEPRAZOLE MAGNESIUM
     Route: 048
  6. NEXIUM 24HR [Suspect]
     Active Substance: ESOMEPRAZOLE MAGNESIUM
     Route: 048

REACTIONS (12)
  - Intentional product misuse [Unknown]
  - Influenza [Unknown]
  - Abdominal discomfort [Unknown]
  - Sinus disorder [Unknown]
  - Memory impairment [Unknown]
  - Somnolence [Unknown]
  - Abdominal pain upper [Unknown]
  - Product use issue [Unknown]
  - Viral upper respiratory tract infection [Unknown]
  - Bronchitis [Unknown]
  - Extra dose administered [Unknown]
  - Headache [Unknown]

NARRATIVE: CASE EVENT DATE: 201704
